FAERS Safety Report 9032462 (Version 2)
Quarter: 2013Q2

REPORT INFORMATION
  Report Type: Report from Study
  Country: JP (occurrence: JP)
  Receive Date: 20130125
  Receipt Date: 20130522
  Transmission Date: 20140414
  Serious: Yes (Life-Threatening)
  Sender: FDA-Public Use
  Company Number: JP-GLAXOSMITHKLINE-B0861126A

PATIENT
  Age: 77 Year
  Sex: Male
  Weight: 54 kg

DRUGS (8)
  1. VOTRIENT [Suspect]
     Indication: ANGIOSARCOMA
     Dosage: 800MG PER DAY
     Route: 048
     Dates: start: 20121227, end: 20130106
  2. METHYCOBAL [Concomitant]
     Indication: NEUROPATHY PERIPHERAL
     Route: 048
  3. JUVELA N [Concomitant]
     Indication: HYPERLIPIDAEMIA
     Route: 048
  4. LIPITOR [Concomitant]
     Indication: HYPERLIPIDAEMIA
     Route: 048
  5. LONGERIL [Concomitant]
     Indication: HYPERTENSION
     Route: 048
  6. NEUFAN [Concomitant]
     Indication: HYPERURICAEMIA
     Route: 048
  7. ARGAMATE [Concomitant]
     Indication: HYPERKALAEMIA
     Route: 048
  8. CALONAL [Concomitant]
     Indication: CANCER PAIN
     Route: 048

REACTIONS (2)
  - Blood creatinine increased [Not Recovered/Not Resolved]
  - Nausea [Not Recovered/Not Resolved]
